FAERS Safety Report 25553372 (Version 1)
Quarter: 2025Q3

REPORT INFORMATION
  Report Type: Spontaneous
  Country: EU (occurrence: EU)
  Receive Date: 20250715
  Receipt Date: 20250715
  Transmission Date: 20251021
  Serious: Yes (Hospitalization)
  Sender: TEVA
  Company Number: None

PATIENT
  Age: 4 Year
  Sex: Male
  Weight: 15 kg

DRUGS (3)
  1. VINCRISTINE [Suspect]
     Active Substance: VINCRISTINE
     Indication: Precursor T-lymphoblastic leukaemia acute
     Route: 042
     Dates: start: 20250526, end: 20250619
  2. DAUNORUBICIN HYDROCHLORIDE [Suspect]
     Active Substance: DAUNORUBICIN HYDROCHLORIDE
     Indication: T-cell type acute leukaemia
     Route: 042
     Dates: start: 20250526, end: 20250619
  3. ONCASPAR [Suspect]
     Active Substance: PEGASPARGASE
     Indication: T-cell type acute leukaemia
     Route: 042
     Dates: start: 20250530, end: 20250616

REACTIONS (1)
  - Generalised oedema [Recovering/Resolving]

NARRATIVE: CASE EVENT DATE: 20250624
